FAERS Safety Report 9733271 (Version 1)
Quarter: 2013Q4

REPORT INFORMATION
  Report Type: Report from Study
  Country: DE (occurrence: DE)
  Receive Date: 20131205
  Receipt Date: 20131205
  Transmission Date: 20140711
  Serious: Yes (Hospitalization)
  Sender: FDA-Public Use
  Company Number: DE-UCBSA-104466

PATIENT
  Age: 75 Year
  Sex: Male
  Weight: 92 kg

DRUGS (7)
  1. NEUPRO [Suspect]
     Indication: RESTLESS LEGS SYNDROME
     Route: 062
  2. JURNISTA [Concomitant]
     Indication: RESTLESS LEGS SYNDROME
     Route: 048
  3. GABAPENTIN [Concomitant]
     Indication: RESTLESS LEGS SYNDROME
     Route: 048
     Dates: start: 2012
  4. ASS [Concomitant]
     Indication: PLATELET AGGREGATION INHIBITION
     Route: 048
  5. LORZAAR PLUS [Concomitant]
     Indication: HYPERTENSION
     Dosage: 100/12.5 MG DAILY
     Route: 048
  6. SIMVASTATIN [Concomitant]
     Indication: HYPERCHOLESTEROLAEMIA
     Route: 048
  7. DORZOLAMID [Concomitant]
     Indication: GLAUCOMA
     Dosage: UNKNOWN DOSE

REACTIONS (1)
  - Pulmonary embolism [Unknown]
